FAERS Safety Report 6854118-4 (Version None)
Quarter: 2010Q3

REPORT INFORMATION
  Report Type: 
  Country: None (occurrence: None)
  Receive Date: 20100717
  Receipt Date: 20080207
  Transmission Date: 20110219
  Serious: Yes (Other)
  Sender: FDA-Public Use
  Company Number: US-PFIZER INC-2007108327

PATIENT
  Sex: Female
  Weight: 122 kg

DRUGS (2)
  1. CHANTIX [Suspect]
     Indication: SMOKING CESSATION THERAPY
     Dates: start: 20071006
  2. BYETTA [Concomitant]

REACTIONS (2)
  - BLOOD GLUCOSE INCREASED [None]
  - UNEVALUABLE EVENT [None]
